FAERS Safety Report 8522115-9 (Version None)
Quarter: 2012Q3

REPORT INFORMATION
  Report Type: 
  Country: None (occurrence: None)
  Receive Date: 20120719
  Receipt Date: 20120712
  Transmission Date: 20120928
  Serious: Yes (Hospitalization, Other)
  Sender: FDA-Public Use
  Company Number: US-ABBOTT-12P-163-0954141-00

PATIENT
  Sex: Female

DRUGS (4)
  1. HUMIRA [Suspect]
     Dosage: 40 MG ON DAY 28
  2. HUMIRA [Suspect]
  3. HUMIRA [Suspect]
     Dosage: 80 MG LOADING DOSE ON DAY 15
  4. HUMIRA [Suspect]
     Indication: CROHN'S DISEASE
     Dosage: 160 MG LOADING DOSE ON DAY 1
     Route: 058
     Dates: start: 20120401, end: 20120401

REACTIONS (2)
  - SURGERY [None]
  - HOSPITALISATION [None]
